FAERS Safety Report 20958023 (Version 2)
Quarter: 2022Q2

REPORT INFORMATION
  Report Type: Spontaneous
  Country: US (occurrence: US)
  Receive Date: 20220614
  Receipt Date: 20220616
  Transmission Date: 20220721
  Serious: No
  Sender: FDA-Public Use
  Company Number: US-PFIZER INC-PV202200001184

PATIENT
  Age: 78 Year
  Sex: Female
  Weight: 48.99 kg

DRUGS (1)
  1. XALKORI [Suspect]
     Active Substance: CRIZOTINIB
     Dosage: 200 MG
     Dates: end: 20220215

REACTIONS (1)
  - Renal disorder [Unknown]
